FAERS Safety Report 7315287-5 (Version None)
Quarter: 2011Q1

REPORT INFORMATION
  Report Type: 
  Country: None (occurrence: None)
  Receive Date: 20110225
  Receipt Date: 20110210
  Transmission Date: 20110831
  Serious: Yes (Hospitalization)
  Sender: FDA-Public Use
  Company Number: PHHY2011TR11102

PATIENT
  Age: 28 Year

DRUGS (2)
  1. GLEEVEC [Suspect]
     Indication: CHRONIC MYELOID LEUKAEMIA
     Route: 048
     Dates: start: 20090112
  2. GLEEVEC [Suspect]
     Route: 048

REACTIONS (2)
  - PYREXIA [None]
  - LIVER INJURY [None]
